FAERS Safety Report 23732919 (Version 1)
Quarter: 2024Q2

REPORT INFORMATION
  Report Type: Spontaneous
  Country: US (occurrence: None)
  Receive Date: 20240411
  Receipt Date: 20240411
  Transmission Date: 20240717
  Serious: No
  Sender: FDA-Public Use
  Company Number: None

PATIENT
  Age: 69 Year
  Sex: Male
  Weight: 92 kg

DRUGS (1)
  1. CYCLOPHOSPHAMIDE [Suspect]
     Active Substance: CYCLOPHOSPHAMIDE
     Indication: Plasma cell myeloma
     Dosage: OTHER FREQUENCY : DAYS 1,8,15, 22;?
     Route: 048
     Dates: start: 20220914

REACTIONS (4)
  - Haemoglobin decreased [None]
  - Haematuria [None]
  - Haemorrhage [None]
  - Transfusion [None]

NARRATIVE: CASE EVENT DATE: 20240411
